FAERS Safety Report 6551152-9 (Version None)
Quarter: 2010Q1

REPORT INFORMATION
  Report Type: 
  Country: None (occurrence: None)
  Receive Date: 20100121
  Receipt Date: 20100111
  Transmission Date: 20100710
  Serious: Yes (Other)
  Sender: FDA-Public Use
  Company Number: TPG2009A01007

PATIENT
  Age: 73 Year
  Sex: Male

DRUGS (3)
  1. ACTOS [Suspect]
     Indication: TYPE 2 DIABETES MELLITUS
     Dosage: 30 MG (30 MG, 1 IN 1 D) PER ORAL
     Route: 048
     Dates: end: 20090819
  2. ASPIRIN [Concomitant]
  3. RAMIPRIL [Concomitant]

REACTIONS (1)
  - HEPATITIS TOXIC [None]
